FAERS Safety Report 5852354-7 (Version None)
Quarter: 2008Q3

REPORT INFORMATION
  Report Type: 
  Country: None (occurrence: None)
  Receive Date: 20080820
  Receipt Date: 20080820
  Transmission Date: 20090109
  Serious: Yes (Other)
  Sender: FDA-Public Use
  Company Number: None

PATIENT
  Age: 53 Year
  Sex: Male
  Weight: 95.2554 kg

DRUGS (2)
  1. CYMBALTA [Suspect]
     Indication: ATTENTION DEFICIT/HYPERACTIVITY DISORDER
     Dosage: 30 MG OR 60 MG 1/DAY PO
     Route: 048
     Dates: start: 20070801, end: 20080815
  2. CYMBALTA [Suspect]

REACTIONS (2)
  - IRRITABILITY [None]
  - PARAESTHESIA [None]
